FAERS Safety Report 5347885-2 (Version None)
Quarter: 2007Q2

REPORT INFORMATION
  Report Type: 
  Country: None (occurrence: None)
  Receive Date: 20070514
  Receipt Date: 20060907
  Transmission Date: 20071010
  Serious: Yes (Other)
  Sender: FDA-Public Use
  Company Number: AE-906-305

PATIENT
  Age: 73 Year
  Sex: Female

DRUGS (4)
  1. LIDODERM [Suspect]
     Indication: PAIN
     Dosage: 1 PATCH 12 HOURS A DAY
  2. LIDODERM [Suspect]
     Indication: RIB FRACTURE
     Dosage: 1 PATCH 12 HOURS A DAY
  3. PREDNISONE TAB [Concomitant]
  4. AVELOX [Concomitant]

REACTIONS (6)
  - ABNORMAL BEHAVIOUR [None]
  - DYSPHONIA [None]
  - INCOHERENT [None]
  - MALAISE [None]
  - PYREXIA [None]
  - SYNCOPE [None]
